FAERS Safety Report 14242674 (Version 1)
Quarter: 2017Q4

REPORT INFORMATION
  Report Type: Spontaneous
  Country: US (occurrence: US)
  Receive Date: 20171201
  Receipt Date: 20171201
  Transmission Date: 20180321
  Serious: Yes (Life-Threatening, Other)
  Sender: FDA-Public Use
  Company Number: US-TORRENT-00004760

PATIENT
  Sex: Female

DRUGS (3)
  1. AMISULPRIDE [Suspect]
     Active Substance: AMISULPRIDE
     Indication: BIPOLAR DISORDER
     Dosage: DOSE WAS LOWERED
  2. LITHIUM. [Suspect]
     Active Substance: LITHIUM
     Indication: BIPOLAR DISORDER
     Dosage: DOSE WAS LOWERED
  3. OLANZAPINE. [Suspect]
     Active Substance: OLANZAPINE
     Indication: BIPOLAR DISORDER
     Dosage: DOSE LOWERED

REACTIONS (4)
  - Toxicity to various agents [Unknown]
  - Ventricular arrhythmia [Unknown]
  - Stress cardiomyopathy [Unknown]
  - Electrocardiogram QT prolonged [Recovering/Resolving]
